FAERS Safety Report 14702994 (Version 1)
Quarter: 2018Q2

REPORT INFORMATION
  Report Type: Spontaneous
  Country: FR (occurrence: FR)
  Receive Date: 20180402
  Receipt Date: 20180402
  Transmission Date: 20180711
  Serious: Yes (Other)
  Sender: FDA-Public Use
  Company Number: FR-MERCK KGAA-2044871

PATIENT
  Age: 68 Year
  Sex: Female

DRUGS (1)
  1. NOVOTHYROX [Suspect]
     Active Substance: LEVOTHYROXINE SODIUM
     Indication: PRODUCT USED FOR UNKNOWN INDICATION
     Dates: start: 2017

REACTIONS (25)
  - Abdominal pain upper [None]
  - Loss of personal independence in daily activities [None]
  - Arthralgia [None]
  - Amnesia [None]
  - Dizziness [None]
  - Diarrhoea [None]
  - Headache [None]
  - Depression [None]
  - Constipation [None]
  - Muscle spasms [None]
  - Fatigue [None]
  - Ageusia [None]
  - Hot flush [None]
  - Crying [None]
  - Suicidal ideation [None]
  - Dry skin [None]
  - Weight increased [None]
  - Aggression [None]
  - Impaired driving ability [None]
  - Insomnia [None]
  - Diabetes mellitus [None]
  - Migraine [None]
  - Myalgia [None]
  - Gastrointestinal motility disorder [None]
  - Diffuse alopecia [None]

NARRATIVE: CASE EVENT DATE: 201706
